FAERS Safety Report 4585040-4 (Version None)
Quarter: 2005Q1

REPORT INFORMATION
  Report Type: 
  Country: None (occurrence: None)
  Receive Date: 20050217
  Receipt Date: 20041210
  Transmission Date: 20050727
  Serious: No
  Sender: FDA-Public Use
  Company Number: US-GLAXOSMITHKLINE-A0536959A

PATIENT

DRUGS (3)
  1. WELLBUTRIN XL [Suspect]
     Indication: HYPERSOMNIA
     Route: 048
  2. STRATTERA [Concomitant]
  3. EFFEXOR XR [Concomitant]

REACTIONS (1)
  - RASH [None]
